FAERS Safety Report 6258595-1 (Version None)
Quarter: 2009Q3

REPORT INFORMATION
  Report Type: 
  Country: None (occurrence: None)
  Receive Date: 20090707
  Receipt Date: 20090625
  Transmission Date: 20100115
  Serious: Yes (Other)
  Sender: FDA-Public Use
  Company Number: FR-PFIZER INC-2009172274

PATIENT
  Age: 64 Year

DRUGS (4)
  1. XANAX [Suspect]
     Dosage: UNK
  2. ZOLPIDEM TARTRATE [Concomitant]
     Dosage: UNK
  3. ALIMEMAZINE TARTRATE [Concomitant]
     Dosage: UNK
  4. AMITRIPTYLINE [Concomitant]
     Dosage: UNK

REACTIONS (2)
  - ANGIOEDEMA [None]
  - LIP OEDEMA [None]
